FAERS Safety Report 5772124-8 (Version None)
Quarter: 2008Q2

REPORT INFORMATION
  Report Type: 
  Country: None (occurrence: None)
  Receive Date: 20080613
  Receipt Date: 20080605
  Transmission Date: 20081010
  Serious: Yes (Hospitalization, Disabling, Other)
  Sender: FDA-Public Use
  Company Number: US-MERCK-0806USA00987

PATIENT
  Age: 65 Year
  Sex: Female

DRUGS (7)
  1. FOSAMAX [Suspect]
     Route: 048
  2. BONIVA [Suspect]
     Route: 048
  3. ZETIA [Concomitant]
     Route: 048
  4. ASPIRIN [Concomitant]
     Route: 065
  5. PRILOSEC [Concomitant]
     Route: 065
  6. CLINDAMYCIN [Concomitant]
     Route: 065
  7. PERIDEX (CHLORHEXIDINE GLUCONATE) [Concomitant]
     Route: 065

REACTIONS (2)
  - JAW FRACTURE [None]
  - OSTEONECROSIS [None]
